FAERS Safety Report 24701185 (Version 1)
Quarter: 2024Q4

REPORT INFORMATION
  Report Type: Spontaneous
  Country: AT (occurrence: AT)
  Receive Date: 20241205
  Receipt Date: 20241205
  Transmission Date: 20250115
  Serious: Yes (Other)
  Sender: MYLAN
  Company Number: AT-MYLANLABS-2024M1109277

PATIENT
  Age: 77 Year
  Sex: Male

DRUGS (5)
  1. AZATHIOPRINE [Suspect]
     Active Substance: AZATHIOPRINE
     Indication: Myasthenia gravis
     Dosage: 150 MILLIGRAM
     Route: 065
  2. PYRIDOSTIGMINE [Suspect]
     Active Substance: PYRIDOSTIGMINE
     Indication: Myasthenia gravis
     Dosage: 60 MILLIGRAM, 4-6 TIMES DAILY
     Route: 065
  3. MYCOPHENOLATE MOFETIL [Suspect]
     Active Substance: MYCOPHENOLATE MOFETIL
     Indication: Myasthenia gravis
     Dosage: 3 GRAM
     Route: 065
  4. PREDNISOLONE [Suspect]
     Active Substance: PREDNISOLONE
     Indication: Myasthenia gravis
     Dosage: 40 MILLIGRAM
     Route: 065
  5. RITUXIMAB [Suspect]
     Active Substance: RITUXIMAB
     Indication: Myasthenia gravis
     Dosage: UNK, 2 TIMES EVERY 14 DAYS
     Route: 065

REACTIONS (1)
  - Drug ineffective [Unknown]
